FAERS Safety Report 9166687 (Version 1)
Quarter: 2013Q1

REPORT INFORMATION
  Report Type: Report from Study
  Country: US (occurrence: US)
  Receive Date: 20130315
  Receipt Date: 20130315
  Transmission Date: 20140127
  Serious: Yes (Life-Threatening, Hospitalization)
  Sender: FDA-Public Use
  Company Number: US-BAYER-2013-016202

PATIENT
  Age: 67 Year
  Sex: Female
  Weight: 50 kg

DRUGS (3)
  1. REGORAFENIB [Suspect]
     Indication: GASTROINTESTINAL STROMAL TUMOUR
     Dosage: 160 MG, QD
     Route: 048
     Dates: start: 20130123
  2. PROTONIX [Concomitant]
     Indication: ABDOMINAL PAIN UPPER
     Dosage: DAILY DOSE 20 MG
     Route: 048
     Dates: start: 20130118
  3. IMITREX [Concomitant]
     Indication: MIGRAINE
     Dosage: DAILY DOSE 6 MG
     Route: 030
     Dates: start: 20120516, end: 201302

REACTIONS (1)
  - Stress cardiomyopathy [Recovered/Resolved]
